FAERS Safety Report 5817321-8 (Version None)
Quarter: 2008Q3

REPORT INFORMATION
  Report Type: 
  Country: None (occurrence: None)
  Receive Date: 20080722
  Receipt Date: 20080715
  Transmission Date: 20090109
  Serious: Yes (Other)
  Sender: FDA-Public Use
  Company Number: FR-AVENTIS-200816600GDDC

PATIENT
  Age: 80 Year
  Sex: Female

DRUGS (1)
  1. METRONIDAZOLE HCL [Suspect]

REACTIONS (2)
  - CONFUSIONAL STATE [None]
  - HALLUCINATION, VISUAL [None]
